FAERS Safety Report 4721327-X (Version None)
Quarter: 2005Q3

REPORT INFORMATION
  Report Type: 
  Country: None (occurrence: None)
  Receive Date: 20050721
  Receipt Date: 20040624
  Transmission Date: 20060218
  Serious: No
  Sender: FDA-Public Use
  Company Number: US-BRISTOL-MYERS SQUIBB COMPANY-12625240

PATIENT
  Sex: Male

DRUGS (1)
  1. COUMADIN [Suspect]
     Dosage: FOR SEVERAL YEARS, TAKEN VARYING AMOUNTS FROM 6 TO 8MG DAILY; DAILY DOSE: INCREASES OR DECREASES.

REACTIONS (2)
  - IRRITABILITY [None]
  - MOOD ALTERED [None]
